FAERS Safety Report 8203685-7 (Version None)
Quarter: 2012Q1

REPORT INFORMATION
  Report Type: 
  Country: None (occurrence: None)
  Receive Date: 20120308
  Receipt Date: 20120221
  Transmission Date: 20120608
  Serious: Yes (Other)
  Sender: FDA-Public Use
  Company Number: FK201200573

PATIENT
  Age: 64 Year
  Sex: Female

DRUGS (9)
  1. CALCIUM CARBONATE [Concomitant]
  2. VENLAFAXINE [Concomitant]
  3. ETIDRONATE DISODIUM [Concomitant]
  4. IRINOTECAN HCL [Concomitant]
  5. DOCUSATE SODIUM [Concomitant]
  6. LEUCOVORIN CALCIUM [Concomitant]
  7. FLUOROURACIL [Suspect]
     Indication: COLON CANCER
  8. PHENYTOIN [Suspect]
     Indication: EPILEPSY
  9. CETUXIMAB [Concomitant]

REACTIONS (10)
  - ATAXIA [None]
  - HYPERREFLEXIA [None]
  - BALANCE DISORDER [None]
  - GAIT DISTURBANCE [None]
  - DRUG INTERACTION [None]
  - DIZZINESS [None]
  - SOMNOLENCE [None]
  - ANTICONVULSANT DRUG LEVEL DECREASED [None]
  - COLON CANCER METASTATIC [None]
  - TOXICITY TO VARIOUS AGENTS [None]
